FAERS Safety Report 7623777-0 (Version None)
Quarter: 2011Q3

REPORT INFORMATION
  Report Type: 
  Country: None (occurrence: None)
  Receive Date: 20110720
  Receipt Date: 20110718
  Transmission Date: 20111222
  Serious: Yes (Hospitalization)
  Sender: FDA-Public Use
  Company Number: DE-GLAXOSMITHKLINE-D0072096A

PATIENT
  Age: 22 Year
  Sex: Female

DRUGS (1)
  1. BUPROPION HCL [Suspect]
     Dosage: 150MG PER DAY
     Route: 048
     Dates: start: 20101002, end: 20101017

REACTIONS (1)
  - WEIGHT INCREASED [None]
